FAERS Safety Report 9434440 (Version 1)
Quarter: 2013Q3

REPORT INFORMATION
  Report Type: Spontaneous
  Country: US (occurrence: US)
  Receive Date: 20130725
  Receipt Date: 20130725
  Transmission Date: 20140515
  Serious: Yes (Other)
  Sender: FDA-Public Use
  Company Number: ADR-2013-00968

PATIENT
  Sex: Male

DRUGS (1)
  1. BACLOFEN [Suspect]
     Indication: MUSCLE SPASTICITY

REACTIONS (6)
  - Drug ineffective [None]
  - Intervertebral disc protrusion [None]
  - Medical device complication [None]
  - Device malfunction [None]
  - Device breakage [None]
  - Cerebrospinal fluid leakage [None]
